FAERS Safety Report 8187130-6 (Version None)
Quarter: 2012Q1

REPORT INFORMATION
  Report Type: 
  Country: None (occurrence: None)
  Receive Date: 20120302
  Receipt Date: 20120215
  Transmission Date: 20120608
  Serious: Yes (Other)
  Sender: FDA-Public Use
  Company Number: 2012P1002804

PATIENT
  Age: 82 Year
  Sex: Female

DRUGS (13)
  1. DIGOXIN [Concomitant]
  2. VAGIFEM [Concomitant]
  3. METOPROLOL SUCCINATE [Concomitant]
  4. FUROSEMIDE [Concomitant]
  5. PRAVASTATIN [Concomitant]
  6. WARFARIN SODIUM [Suspect]
     Indication: ATRIAL FIBRILLATION
     Dosage: 5 MG;QOD, 2.5 MG;QOD, 5 MG;TUES, THURS AND FRI, 2.5 MG;MON AND WEDS, 7.5 MG;1 DAY A WEEK, 5 MG; 6 DA
     Dates: start: 20120113
  7. WARFARIN SODIUM [Suspect]
     Indication: ATRIAL FIBRILLATION
     Dosage: 5 MG;QOD, 2.5 MG;QOD, 5 MG;TUES, THURS AND FRI, 2.5 MG;MON AND WEDS, 7.5 MG;1 DAY A WEEK, 5 MG; 6 DA
     Dates: start: 20111217, end: 20120105
  8. WARFARIN SODIUM [Suspect]
     Indication: ATRIAL FIBRILLATION
     Dosage: 5 MG;QOD, 2.5 MG;QOD, 5 MG;TUES, THURS AND FRI, 2.5 MG;MON AND WEDS, 7.5 MG;1 DAY A WEEK, 5 MG; 6 DA
     Dates: start: 20111217, end: 20120105
  9. WARFARIN SODIUM [Suspect]
     Indication: ATRIAL FIBRILLATION
     Dosage: 5 MG;QOD, 2.5 MG;QOD, 5 MG;TUES, THURS AND FRI, 2.5 MG;MON AND WEDS, 7.5 MG;1 DAY A WEEK, 5 MG; 6 DA
     Dates: start: 20120106, end: 20120112
  10. WARFARIN SODIUM [Suspect]
     Indication: ATRIAL FIBRILLATION
     Dosage: 5 MG;QOD, 2.5 MG;QOD, 5 MG;TUES, THURS AND FRI, 2.5 MG;MON AND WEDS, 7.5 MG;1 DAY A WEEK, 5 MG; 6 DA
     Dates: start: 20120106, end: 20120112
  11. WARFARIN SODIUM [Suspect]
     Indication: ATRIAL FIBRILLATION
     Dosage: 5 MG;QOD, 2.5 MG;QOD, 5 MG;TUES, THURS AND FRI, 2.5 MG;MON AND WEDS, 7.5 MG;1 DAY A WEEK, 5 MG; 6 DA
     Dates: end: 20111206
  12. WARFARIN SODIUM [Suspect]
     Indication: ATRIAL FIBRILLATION
     Dosage: 5 MG;QOD, 2.5 MG;QOD, 5 MG;TUES, THURS AND FRI, 2.5 MG;MON AND WEDS, 7.5 MG;1 DAY A WEEK, 5 MG; 6 DA
     Dates: start: 20120113
  13. LISINOPRIL [Concomitant]

REACTIONS (2)
  - IMPLANT SITE HAEMATOMA [None]
  - INTERNATIONAL NORMALISED RATIO ABNORMAL [None]
